FAERS Safety Report 14894899 (Version 1)
Quarter: 2018Q2

REPORT INFORMATION
  Report Type: Spontaneous
  Country: JP (occurrence: JP)
  Receive Date: 20180515
  Receipt Date: 20180515
  Transmission Date: 20180711
  Serious: Yes (Death, Other)
  Sender: FDA-Public Use
  Company Number: JP-ACCORD-066928

PATIENT
  Age: 53 Year
  Sex: Male

DRUGS (7)
  1. VINCRISTINE [Suspect]
     Active Substance: VINCRISTINE
     Indication: PLASMABLASTIC LYMPHOMA
  2. METHOTREXATE. [Suspect]
     Active Substance: METHOTREXATE
     Indication: PLASMABLASTIC LYMPHOMA
  3. CYCLOPHOSPHAMIDE/CYCLOPHOSPHAMIDE MONOHYDRATE [Suspect]
     Active Substance: CYCLOPHOSPHAMIDE
     Indication: PLASMABLASTIC LYMPHOMA
  4. DOXORUBICIN [Suspect]
     Active Substance: DOXORUBICIN
     Indication: PLASMABLASTIC LYMPHOMA
  5. PREDNISONE. [Suspect]
     Active Substance: PREDNISONE
     Indication: PLASMABLASTIC LYMPHOMA
  6. CYTARABINE/CYTARABINE HYDROCHLORIDE/CYTARABINE OCFOSFATE [Suspect]
     Active Substance: CYTARABINE
     Indication: PLASMABLASTIC LYMPHOMA
  7. EFAVIRENZ/EMTRICITABINE/TENOFOVIR DISOPROXIL FUMARATE [Concomitant]
     Indication: ANTIRETROVIRAL THERAPY

REACTIONS (29)
  - Histiocytosis haematophagic [Fatal]
  - CD4 lymphocytes decreased [None]
  - Haemorrhage [None]
  - Liver disorder [None]
  - Necrosis [None]
  - Bone marrow failure [Fatal]
  - CD8 lymphocytes decreased [None]
  - Thyroid disorder [None]
  - Epstein-Barr virus infection [Fatal]
  - Pulmonary embolism [None]
  - Escherichia infection [Unknown]
  - Coronary artery embolism [None]
  - Bacteraemia [None]
  - Multiple organ dysfunction syndrome [Fatal]
  - Serum ferritin increased [None]
  - Renal embolism [None]
  - Splenic embolism [None]
  - Bladder disorder [None]
  - Cystitis [None]
  - Lymph node fibrosis [None]
  - Lymphadenopathy [None]
  - Septic shock [Unknown]
  - Interferon gamma level increased [None]
  - Systemic mycosis [None]
  - Embolism [None]
  - Urosepsis [None]
  - Interleukin-2 receptor increased [None]
  - Interleukin level increased [None]
  - CD4/CD8 ratio decreased [None]
